FAERS Safety Report 5049094-3 (Version None)
Quarter: 2006Q3

REPORT INFORMATION
  Report Type: 
  Country: None (occurrence: None)
  Receive Date: 20060706
  Receipt Date: 20060623
  Transmission Date: 20061208
  Serious: Yes (Hospitalization, Other)
  Sender: FDA-Public Use
  Company Number: 2006079370

PATIENT
  Age: 71 Year
  Sex: Male

DRUGS (3)
  1. DOXEPIN HCL [Suspect]
     Dosage: 75 MG (1 D), ORAL
     Route: 048
  2. TEMODAL [Suspect]
     Indication: GLIOBLASTOMA
     Dosage: 135 MG (1 D), ORAL
     Route: 048
     Dates: start: 20060201, end: 20060316
  3. VOLMAC (SALBUTAMOL SULFATE) [Suspect]
     Dosage: 8 MG (1 D), ORAL
     Route: 048

REACTIONS (3)
  - HEPATOTOXICITY [None]
  - JAUNDICE [None]
  - TRANSAMINASES INCREASED [None]
